FAERS Safety Report 6491858-3 (Version None)
Quarter: 2009Q4

REPORT INFORMATION
  Report Type: 
  Country: None (occurrence: None)
  Receive Date: 20091125
  Receipt Date: 20090730
  Transmission Date: 20100525
  Serious: Yes (Hospitalization)
  Sender: FDA-Public Use
  Company Number: 2009BH012178

PATIENT
  Age: 58 Year
  Sex: Male

DRUGS (20)
  1. DIANEAL [Suspect]
     Indication: PERITONEAL DIALYSIS
     Dosage: 12 L; IP
     Route: 033
     Dates: start: 20080101
  2. CEFAZOLIN [Concomitant]
  3. CELEXA [Concomitant]
  4. CLONAZEPAM [Concomitant]
  5. PHENYTOIN [Concomitant]
  6. DOCUSATE SODIUM [Concomitant]
  7. ENGERIX-B [Concomitant]
  8. EPOGEN [Concomitant]
  9. FORTAZ [Concomitant]
  10. FUROSEMIDE [Concomitant]
  11. LISINOPRIL [Concomitant]
  12. NASAREL [Concomitant]
  13. NEPHROCAPS [Concomitant]
  14. OMEPRAZOLE [Concomitant]
  15. PLAVIX [Concomitant]
  16. SEROQUEL [Concomitant]
  17. TOPROL-XL [Concomitant]
  18. TRAZODONE HYDROCHLORIDE [Concomitant]
  19. EZETIMIBE [Concomitant]
  20. BUPROPION HYDROCHLORIDE [Concomitant]

REACTIONS (1)
  - PERITONITIS [None]
